FAERS Safety Report 9837594 (Version 1)
Quarter: 2014Q1

REPORT INFORMATION
  Report Type: Report from Study
  Country: DK (occurrence: DK)
  Receive Date: 20140123
  Receipt Date: 20140123
  Transmission Date: 20141002
  Serious: Yes (Other)
  Sender: FDA-Public Use
  Company Number: DK-BAYER-2014-007944

PATIENT
  Sex: 0

DRUGS (1)
  1. REGORAFENIB [Suspect]
     Indication: COLORECTAL CANCER METASTATIC
     Route: 048

REACTIONS (2)
  - Local swelling [None]
  - Pain in extremity [None]
